FAERS Safety Report 23910447 (Version 1)
Quarter: 2024Q2

REPORT INFORMATION
  Report Type: Spontaneous
  Country: US (occurrence: US)
  Receive Date: 20240528
  Receipt Date: 20240528
  Transmission Date: 20240716
  Serious: No
  Sender: FDA-Public Use
  Company Number: US-PERRIGO-23US011880

PATIENT
  Age: 29 Year
  Sex: Female
  Weight: 70.748 kg

DRUGS (1)
  1. MINOXIDIL [Suspect]
     Active Substance: MINOXIDIL
     Indication: Hypotrichosis
     Dosage: UNKNOWN, EVERY 2 TO 3 DAYS
     Route: 061
     Dates: start: 202306, end: 20230901

REACTIONS (2)
  - Alopecia [Recovering/Resolving]
  - Product administered at inappropriate site [Unknown]

NARRATIVE: CASE EVENT DATE: 20230601
